FAERS Safety Report 8781659 (Version 2)
Quarter: 2013Q1

REPORT INFORMATION
  Report Type: Spontaneous
  Country: US (occurrence: US)
  Receive Date: 20120913
  Receipt Date: 20130111
  Transmission Date: 20140127
  Serious: No
  Sender: FDA-Public Use
  Company Number: US-009507513-1209USA001123

PATIENT
  Age: 17 None
  Sex: Female
  Weight: 44.9 kg

DRUGS (2)
  1. IMPLANON [Suspect]
     Dosage: 1 DF, UNK
     Route: 059
     Dates: start: 20110928, end: 20120830
  2. CELEXA [Concomitant]
     Dosage: UNK

REACTIONS (4)
  - Unintended pregnancy [Unknown]
  - Nausea [Unknown]
  - Vomiting [Unknown]
  - Adverse event [Unknown]
